FAERS Safety Report 8997013 (Version 2)
Quarter: 2013Q1

REPORT INFORMATION
  Report Type: Spontaneous
  Country: JP (occurrence: JP)
  Receive Date: 20130104
  Receipt Date: 20130325
  Transmission Date: 20140127
  Serious: Yes (Life-Threatening, Hospitalization)
  Sender: FDA-Public Use
  Company Number: JP-BAYER-201014856BYL

PATIENT
  Age: 84 Year
  Sex: Male

DRUGS (4)
  1. NEXAVAR [Suspect]
     Indication: HEPATOCELLULAR CARCINOMA
     Dosage: 400 MG, BID
     Route: 048
     Dates: start: 20100823, end: 20100830
  2. NEXAVAR [Suspect]
     Indication: HEPATOCELLULAR CARCINOMA
     Dosage: 400 MG DAILY
     Route: 048
     Dates: start: 20100831, end: 20100905
  3. KERATINAMIN [Concomitant]
     Indication: PROPHYLAXIS
     Dosage: UNK
     Route: 061
     Dates: start: 20100823, end: 20100905
  4. DIOVAN [Concomitant]
     Indication: HYPERTENSION
     Dosage: DAILY DOSE 40 MG
     Route: 048

REACTIONS (4)
  - Ventricular tachyarrhythmia [Recovered/Resolved]
  - Rash generalised [Recovered/Resolved]
  - Dizziness [Recovered/Resolved]
  - Platelet count decreased [Recovered/Resolved]
